FAERS Safety Report 7193346-8 (Version None)
Quarter: 2010Q4

REPORT INFORMATION
  Report Type: 
  Country: None (occurrence: None)
  Receive Date: 20101223
  Receipt Date: 20100902
  Transmission Date: 20110411
  Serious: No
  Sender: FDA-Public Use
  Company Number: US-AMGEN-TCS430492

PATIENT

DRUGS (6)
  1. ENBREL [Suspect]
     Indication: PSORIASIS
     Dosage: 50 MG, QWK
     Route: 058
     Dates: start: 20060419
  2. OLMESARTAN MEDOXOMIL [Concomitant]
     Indication: PRODUCT USED FOR UNKNOWN INDICATION
     Dosage: 20 MG, QD
     Route: 048
  3. CENTRUM SILVER [Concomitant]
     Dosage: UNK UNK, QD
     Route: 048
  4. FISH OIL [Concomitant]
     Dosage: 1000 MG, QD
     Route: 048
  5. MAGNESIUM [Concomitant]
     Dosage: 400 MG, QD
     Route: 048
  6. LORATADINE [Concomitant]
     Dosage: UNK UNK, QD
     Route: 048

REACTIONS (2)
  - CANDIDA TEST POSITIVE [None]
  - CATARACT [None]
